FAERS Safety Report 5751520-9 (Version None)
Quarter: 2008Q2

REPORT INFORMATION
  Report Type: 
  Country: None (occurrence: None)
  Receive Date: 20080528
  Receipt Date: 20080515
  Transmission Date: 20081010
  Serious: Yes (Other)
  Sender: FDA-Public Use
  Company Number: PHHO2007BR12302

PATIENT
  Age: 54 Year
  Sex: Female
  Weight: 66 kg

DRUGS (2)
  1. DIOVAN [Suspect]
     Indication: HYPERTENSION
     Dosage: 160 MG, QD
     Route: 048
     Dates: start: 20060101, end: 20070101
  2. DIOVAN [Suspect]
     Dosage: 80 MG, QD
     Route: 048
     Dates: start: 20070101

REACTIONS (6)
  - BLOOD CHOLESTEROL INCREASED [None]
  - BLOOD PRESSURE DECREASED [None]
  - DYSPEPSIA [None]
  - HYSTERECTOMY [None]
  - LUNG NEOPLASM [None]
  - OVARIAN CANCER [None]
